FAERS Safety Report 4431795-9 (Version None)
Quarter: 2004Q3

REPORT INFORMATION
  Report Type: 
  Country: None (occurrence: None)
  Receive Date: 20040825
  Receipt Date: 20040818
  Transmission Date: 20050211
  Serious: Yes (Death, Hospitalization)
  Sender: FDA-Public Use
  Company Number: JP-JNJFOC-20040806078

PATIENT
  Age: 95 Year
  Sex: Female

DRUGS (4)
  1. OFLOXACIN [Suspect]
     Indication: URINARY TRACT INFECTION
     Route: 049
     Dates: start: 20040331, end: 20040527
  2. OFLOXACIN [Suspect]
     Indication: DRUG USE FOR UNKNOWN INDICATION
     Route: 049
     Dates: start: 20040331, end: 20040527
  3. AUGMENTIN '125' [Suspect]
     Route: 049
     Dates: start: 20040328, end: 20040331
  4. AUGMENTIN '125' [Suspect]
     Indication: DRUG USE FOR UNKNOWN INDICATION
     Route: 049
     Dates: start: 20040328, end: 20040331

REACTIONS (5)
  - CLOSTRIDIUM COLITIS [None]
  - DIET REFUSAL [None]
  - DISEASE RECURRENCE [None]
  - GENERAL PHYSICAL HEALTH DETERIORATION [None]
  - URINARY TRACT INFECTION [None]
